FAERS Safety Report 9765021 (Version 1)
Quarter: 2013Q4

REPORT INFORMATION
  Report Type: Spontaneous
  Country: CA (occurrence: CA)
  Receive Date: 20131217
  Receipt Date: 20131217
  Transmission Date: 20140711
  Serious: Yes (Hospitalization)
  Sender: FDA-Public Use
  Company Number: CA-BAYER-2013-153261

PATIENT
  Age: 45 Year
  Sex: Female
  Weight: 58.05 kg

DRUGS (1)
  1. MIRENA [Suspect]
     Dosage: 20 MCG/24HR, CONT
     Route: 015

REACTIONS (5)
  - Abdominal distension [Recovered/Resolved]
  - Dysphagia [Recovered/Resolved]
  - Flatulence [Recovered/Resolved]
  - Pharyngeal oedema [Recovered/Resolved]
  - Throat tightness [Recovered/Resolved]
